FAERS Safety Report 8321852-9 (Version None)
Quarter: 2012Q2

REPORT INFORMATION
  Report Type: 
  Country: None (occurrence: None)
  Receive Date: 20120430
  Receipt Date: 20120425
  Transmission Date: 20120825
  Serious: Yes (Hospitalization)
  Sender: FDA-Public Use
  Company Number: JP-GLAXOSMITHKLINE-B0782234A

PATIENT
  Sex: Female

DRUGS (13)
  1. SERMION [Concomitant]
     Indication: CEREBRAL INFARCTION
     Dosage: 15MG PER DAY
     Route: 048
  2. ZANTAC [Suspect]
     Indication: PRODUCT USED FOR UNKNOWN INDICATION
     Route: 048
  3. LANSOPRAZOLE [Concomitant]
     Dosage: 30MG PER DAY
     Route: 048
  4. NORVASC [Concomitant]
     Indication: HYPERTENSION
     Dosage: 5MG PER DAY
     Route: 048
  5. DIOVAN [Concomitant]
     Indication: HYPERTENSION
     Dosage: 80MG PER DAY
     Route: 048
  6. CHINESE MEDICINE [Concomitant]
     Route: 048
  7. ALLOPURINOL [Suspect]
     Indication: HYPERURICAEMIA
     Dosage: 100MG PER DAY
     Route: 048
     Dates: start: 20100902, end: 20120213
  8. ALFAROL [Concomitant]
     Route: 048
  9. BUFFERIN [Concomitant]
     Indication: CEREBRAL INFARCTION
     Dosage: 81MG PER DAY
     Route: 048
  10. FUROSEMIDE [Concomitant]
     Indication: CARDIAC FAILURE
     Dosage: 10MG PER DAY
     Route: 065
  11. FERROUS SULFATE TAB [Concomitant]
     Dosage: 105MG PER DAY
     Route: 048
     Dates: start: 20080327
  12. SELBEX [Concomitant]
     Route: 048
  13. DEPAS [Concomitant]
     Indication: INSOMNIA
     Dosage: .5MG PER DAY
     Route: 048

REACTIONS (5)
  - GASTROINTESTINAL HAEMORRHAGE [None]
  - ANAEMIA [None]
  - GASTRIC ULCER [None]
  - PYREXIA [None]
  - ABDOMINAL PAIN UPPER [None]
